FAERS Safety Report 18936302 (Version 3)
Quarter: 2021Q2

REPORT INFORMATION
  Report Type: Spontaneous
  Country: US (occurrence: US)
  Receive Date: 20210225
  Receipt Date: 20210505
  Transmission Date: 20210717
  Serious: Yes (Other)
  Sender: FDA-Public Use
  Company Number: US-SPECGX-T202100290

PATIENT
  Age: 72 Year
  Sex: Female
  Weight: 54 kg

DRUGS (3)
  1. ACETAMINOPHEN AND CODEINE [Suspect]
     Active Substance: ACETAMINOPHEN\CODEINE PHOSPHATE
     Indication: BACK PAIN
     Dosage: UNK
     Route: 048
     Dates: start: 1980
  2. ASPIRIN. [Concomitant]
     Active Substance: ASPIRIN
     Indication: HEADACHE
     Dosage: UNK
     Route: 065
  3. ACETAMINOPHEN AND CODEINE [Suspect]
     Active Substance: ACETAMINOPHEN\CODEINE PHOSPHATE
     Indication: PAIN IN EXTREMITY
     Dosage: ONE TABLET EVERY 6 HOURS
     Route: 048
     Dates: start: 20210128, end: 202102

REACTIONS (7)
  - Suspected counterfeit product [Unknown]
  - Drug ineffective [Unknown]
  - Liver disorder [Recovered/Resolved]
  - Headache [Recovered/Resolved]
  - Renal disorder [Recovered/Resolved]
  - Pruritus [Recovered/Resolved]
  - Treatment noncompliance [Unknown]

NARRATIVE: CASE EVENT DATE: 2020
